FAERS Safety Report 12584842 (Version 2)
Quarter: 2016Q3

REPORT INFORMATION
  Report Type: Spontaneous
  Country: US (occurrence: US)
  Receive Date: 20160722
  Receipt Date: 20160823
  Transmission Date: 20161109
  Serious: No
  Sender: FDA-Public Use
  Company Number: US-ACTELION-A-US2016-139245

PATIENT
  Age: 69 Year
  Sex: Female

DRUGS (9)
  1. ZYRTEC [Concomitant]
     Active Substance: CETIRIZINE HYDROCHLORIDE
  2. ALEVE [Concomitant]
     Active Substance: NAPROXEN SODIUM
  3. ATENOLOL. [Concomitant]
     Active Substance: ATENOLOL
  4. VALCHLOR [Suspect]
     Active Substance: MECHLORETHAMINE
     Indication: MYCOSIS FUNGOIDES
     Dosage: UNK, QD
     Route: 061
     Dates: start: 20160520
  5. MULTIVITAMIN [Concomitant]
     Active Substance: VITAMINS
  6. CLONIDINE. [Concomitant]
     Active Substance: CLONIDINE
  7. PROTONIX [Concomitant]
     Active Substance: PANTOPRAZOLE SODIUM
  8. CLOBETASOL [Concomitant]
     Active Substance: CLOBETASOL
  9. TYLENOL [Concomitant]
     Active Substance: ACETAMINOPHEN

REACTIONS (7)
  - Sinus headache [Unknown]
  - Skin discolouration [Recovering/Resolving]
  - Insomnia [Recovering/Resolving]
  - Thermal burn [Unknown]
  - Weight decreased [Recovering/Resolving]
  - Skin burning sensation [Recovering/Resolving]
  - Pruritus [Recovering/Resolving]
